FAERS Safety Report 10043168 (Version 3)
Quarter: 2014Q2

REPORT INFORMATION
  Report Type: Report from Study
  Country: MW (occurrence: MW)
  Receive Date: 20140328
  Receipt Date: 20140425
  Transmission Date: 20141212
  Serious: Yes (Death, Hospitalization)
  Sender: FDA-Public Use
  Company Number: MW-BRISTOL-MYERS SQUIBB COMPANY-20552238

PATIENT
  Age: 44 Year
  Sex: Male
  Weight: 47.1 kg

DRUGS (6)
  1. EFAVIRENZ TABS [Suspect]
     Indication: HIV INFECTION
     Dates: start: 20140225
  2. RALTEGRAVIR [Suspect]
     Indication: HIV INFECTION
     Dates: start: 20140225
  3. TRUVADA [Suspect]
     Indication: HIV INFECTION
     Dates: start: 20140225
  4. CO-TRIMOXAZOLE [Concomitant]
     Dates: start: 20140217
  5. POLYGLUTAMATE PACLITAXEL [Concomitant]
  6. SILDENAFIL [Concomitant]
     Dates: start: 20140225

REACTIONS (4)
  - Pulmonary tuberculosis [Fatal]
  - Pneumonia [Not Recovered/Not Resolved]
  - Sepsis [Not Recovered/Not Resolved]
  - Immune reconstitution inflammatory syndrome associated tuberculosis [Not Recovered/Not Resolved]
